FAERS Safety Report 16312093 (Version 3)
Quarter: 2025Q1

REPORT INFORMATION
  Report Type: Report from Study
  Country: BG (occurrence: BG)
  Receive Date: 20190515
  Receipt Date: 20250227
  Transmission Date: 20250409
  Serious: Yes (Other)
  Sender: AUROBINDO
  Company Number: BG-AUROBINDO-AUR-APL-2019-026087

PATIENT
  Age: 35 Year
  Sex: Male

DRUGS (7)
  1. GABAPENTIN [Suspect]
     Active Substance: GABAPENTIN
     Indication: Generalised tonic-clonic seizure
     Route: 065
  2. GABAPENTIN [Suspect]
     Active Substance: GABAPENTIN
     Indication: Epilepsy
     Route: 065
  3. GABAPENTIN [Suspect]
     Active Substance: GABAPENTIN
     Route: 065
  4. OXCARBAZEPINE [Suspect]
     Active Substance: OXCARBAZEPINE
     Indication: Epilepsy
     Route: 065
  5. OXCARBAZEPINE [Suspect]
     Active Substance: OXCARBAZEPINE
     Indication: Generalised tonic-clonic seizure
  6. VALPROIC ACID [Suspect]
     Active Substance: VALPROIC ACID
     Indication: Epilepsy
     Route: 065
  7. VALPROIC ACID [Suspect]
     Active Substance: VALPROIC ACID
     Indication: Generalised tonic-clonic seizure

REACTIONS (4)
  - Paradoxical drug reaction [Unknown]
  - Seizure [Unknown]
  - Generalised tonic-clonic seizure [Unknown]
  - Condition aggravated [Unknown]
